FAERS Safety Report 7429374-4 (Version None)
Quarter: 2011Q2

REPORT INFORMATION
  Report Type: 
  Country: None (occurrence: None)
  Receive Date: 20110414
  Receipt Date: 20110401
  Transmission Date: 20111010
  Serious: Yes (Hospitalization)
  Sender: FDA-Public Use
  Company Number: 030413

PATIENT
  Sex: Male

DRUGS (1)
  1. KEPPRA [Suspect]
     Indication: PARTIAL SEIZURES
     Dosage: (3000 MG)

REACTIONS (3)
  - AGITATION [None]
  - SELF-INJURIOUS IDEATION [None]
  - ABNORMAL BEHAVIOUR [None]
